FAERS Safety Report 6849359-6 (Version None)
Quarter: 2010Q3

REPORT INFORMATION
  Report Type: 
  Country: None (occurrence: None)
  Receive Date: 20100716
  Receipt Date: 20070927
  Transmission Date: 20110219
  Serious: No
  Sender: FDA-Public Use
  Company Number: US-PFIZER INC-2007082383

PATIENT
  Sex: Female
  Weight: 84.5 kg

DRUGS (4)
  1. CHANTIX [Suspect]
     Indication: SMOKING CESSATION THERAPY
     Dates: start: 20070101
  2. BUSPAR [Interacting]
     Indication: ANXIETY
  3. BUSPAR [Interacting]
     Indication: MOOD SWINGS
  4. ZESTRIL [Concomitant]
     Indication: BLOOD PRESSURE

REACTIONS (4)
  - ANOSMIA [None]
  - DRUG INTERACTION [None]
  - MOOD SWINGS [None]
  - NAUSEA [None]
